FAERS Safety Report 11069891 (Version 1)
Quarter: 2015Q2

REPORT INFORMATION
  Report Type: Spontaneous
  Country: US (occurrence: US)
  Receive Date: 20150427
  Receipt Date: 20150427
  Transmission Date: 20150821
  Serious: Yes (Other)
  Sender: FDA-Public Use
  Company Number: US-ACCORD-030261

PATIENT
  Age: 65 Year
  Sex: Male

DRUGS (1)
  1. FLUOROURACIL. [Suspect]
     Active Substance: FLUOROURACIL
     Indication: EYE OPERATION COMPLICATION
     Dosage: INTRACAMERAL, 500 MG/0.1 ML, ADMINISTERED MONTHLY FOR 3 MONTHS

REACTIONS (2)
  - Off label use [Unknown]
  - Keratopathy [Unknown]
